FAERS Safety Report 19895269 (Version 1)
Quarter: 2021Q3

REPORT INFORMATION
  Report Type: Spontaneous
  Country: US (occurrence: US)
  Receive Date: 20210929
  Receipt Date: 20210929
  Transmission Date: 20211014
  Serious: No
  Sender: FDA-Public Use
  Company Number: None

PATIENT
  Age: 50 Year
  Sex: Male
  Weight: 109.5 kg

DRUGS (2)
  1. PREDNISONE (PREDNISONE 5MG TAB) [Suspect]
     Active Substance: PREDNISONE
     Indication: SUBSTANCE-INDUCED PSYCHOTIC DISORDER
     Dates: start: 20180522, end: 20180601
  2. PREDNISONE (PREDNISONE 5MG TAB) [Suspect]
     Active Substance: PREDNISONE
     Indication: SCHIZOPHRENIA
     Dates: start: 20180522, end: 20180601

REACTIONS (13)
  - Delirium [None]
  - Dehydration [None]
  - Incoherent [None]
  - Abnormal behaviour [None]
  - Dissociation [None]
  - Transaminases increased [None]
  - Psychotic disorder [None]
  - Bipolar disorder [None]
  - Mental status changes [None]
  - Speech disorder [None]
  - Psychotic symptom [None]
  - Consciousness fluctuating [None]
  - Psychomotor hyperactivity [None]

NARRATIVE: CASE EVENT DATE: 20180526
